FAERS Safety Report 6370111-2 (Version None)
Quarter: 2009Q3

REPORT INFORMATION
  Report Type: 
  Country: None (occurrence: None)
  Receive Date: 20090923
  Receipt Date: 20071213
  Transmission Date: 20100115
  Serious: No
  Sender: FDA-Public Use
  Company Number: US-ASTRAZENECA-2006UW21764

PATIENT
  Age: 446 Month
  Sex: Female

DRUGS (14)
  1. SEROQUEL [Suspect]
     Indication: AFFECTIVE DISORDER
     Route: 048
     Dates: start: 20050517
  2. SEROQUEL [Suspect]
     Indication: SLEEP DISORDER
     Route: 048
     Dates: start: 20050517
  3. SEROQUEL [Suspect]
     Dosage: 25 MG DISPENSED, 100 MG BID AND 200 MG AT NIGHT, 200 MG BEDTIME, 100 MG TID
     Route: 048
     Dates: start: 20050615
  4. SEROQUEL [Suspect]
     Dosage: 25 MG DISPENSED, 100 MG BID AND 200 MG AT NIGHT, 200 MG BEDTIME, 100 MG TID
     Route: 048
     Dates: start: 20050615
  5. ABILIFY [Concomitant]
     Dates: start: 20060801
  6. PAXIL [Concomitant]
     Dosage: 30 MG - 40 MG DISPENSED
     Dates: start: 20020919
  7. RISPERDAL [Concomitant]
     Dosage: 0.5 MG - 2 MG DISPENSED
     Dates: start: 20030722
  8. LEVOTHYROXINE SODIUM [Concomitant]
     Indication: HYPOTHYROIDISM
     Dates: start: 20060628
  9. LEVOTHYROXINE SODIUM [Concomitant]
     Indication: BASEDOW'S DISEASE
     Dates: start: 20060628
  10. CYMBALTA [Concomitant]
     Indication: DEPRESSION
     Dates: start: 20051214
  11. KLONOPIN [Concomitant]
     Dosage: 0.5 MG - 3 MG
     Dates: start: 20060628
  12. SYNTHROID [Concomitant]
     Dosage: 0.1 MG TWO TABLETS, TOTAL DAILY DOSE 0.2 MG
     Dates: start: 20060718
  13. ZOLOFT [Concomitant]
     Dates: start: 20030714
  14. EFFEXOR XR [Concomitant]
     Dosage: 75 MG - 150 MG

REACTIONS (3)
  - BLOOD CHOLESTEROL INCREASED [None]
  - DYSLIPIDAEMIA [None]
  - TYPE 2 DIABETES MELLITUS [None]
